FAERS Safety Report 5057358-2 (Version None)
Quarter: 2006Q3

REPORT INFORMATION
  Report Type: 
  Country: None (occurrence: None)
  Receive Date: 20060721
  Receipt Date: 20050114
  Transmission Date: 20061208
  Serious: Yes (Hospitalization, Other)
  Sender: FDA-Public Use
  Company Number: PHNU2005DE00563

PATIENT
  Age: 60 Year
  Sex: Female

DRUGS (9)
  1. ZOMETA [Suspect]
     Indication: MULTIPLE MYELOMA
     Dosage: 4 MG, QMO
     Route: 042
     Dates: start: 20010201, end: 20041201
  2. THALIDOMID [Concomitant]
     Route: 065
     Dates: start: 20030301, end: 20030401
  3. RADIOTHERAPY [Concomitant]
     Indication: RADIOTHERAPY TO BONE
     Dosage: 40 GY
     Route: 061
     Dates: start: 20010201
  4. VINCRISTINE [Concomitant]
     Indication: PLASMACYTOMA
     Dosage: UNK, UNK
     Route: 065
     Dates: start: 20010301, end: 20010601
  5. IDARUBICIN HCL [Concomitant]
     Indication: PLASMACYTOMA
     Route: 065
     Dates: start: 20010301, end: 20010601
  6. DEXAMETHASONE TAB [Concomitant]
     Indication: PLASMACYTOMA
     Route: 065
     Dates: start: 20010301, end: 20010601
  7. ENDOXAN [Concomitant]
     Indication: PLASMACYTOMA
     Route: 065
     Dates: start: 20010701
  8. MELPHALAN [Concomitant]
     Indication: PLASMACYTOMA
     Route: 065
     Dates: start: 20010901
  9. MELPHALAN [Concomitant]
     Route: 065
     Dates: start: 20020201

REACTIONS (11)
  - BIOPSY SITE UNSPECIFIED ABNORMAL [None]
  - BONE DEBRIDEMENT [None]
  - BONE FISTULA [None]
  - INFLAMMATION [None]
  - OSTEITIS [None]
  - OSTEOMYELITIS [None]
  - OSTEONECROSIS [None]
  - PLASTIC SURGERY [None]
  - PRIMARY SEQUESTRUM [None]
  - SEQUESTRECTOMY [None]
  - TOOTH EXTRACTION [None]
